FAERS Safety Report 5751254-0 (Version None)
Quarter: 2008Q2

REPORT INFORMATION
  Report Type: 
  Country: None (occurrence: None)
  Receive Date: 20080528
  Receipt Date: 20080501
  Transmission Date: 20081010
  Serious: No
  Sender: FDA-Public Use
  Company Number: US-BOEHRINGER INGELHEIM GMBH, GERMANY-2008-BP-06936BP

PATIENT
  Age: 82 Year
  Sex: Male

DRUGS (3)
  1. SPIRIVA [Suspect]
     Indication: DYSPNOEA
     Route: 055
     Dates: start: 20080416
  2. GUAIFENESIN [Concomitant]
     Indication: RHINORRHOEA
     Route: 048
  3. OXYGEN [Concomitant]
     Indication: DYSPNOEA

REACTIONS (1)
  - DRY MOUTH [None]
